FAERS Safety Report 13911511 (Version 1)
Quarter: 2017Q3

REPORT INFORMATION
  Report Type: Spontaneous
  Country: US (occurrence: US)
  Receive Date: 20170828
  Receipt Date: 20170828
  Transmission Date: 20171127
  Serious: No
  Sender: FDA-Public Use
  Company Number: US-ROCHE-1141663

PATIENT
  Sex: Male
  Weight: 32.95 kg

DRUGS (2)
  1. NUTROPIN AQ [Suspect]
     Active Substance: SOMATROPIN
     Indication: GROWTH HORMONE DEFICIENCY
  2. NUTROPIN AQ [Suspect]
     Active Substance: SOMATROPIN
     Indication: DWARFISM
     Route: 058

REACTIONS (4)
  - Weight increased [Unknown]
  - Erythema infectiosum [Unknown]
  - Muscle spasms [Unknown]
  - Drug dose omission [Unknown]
